FAERS Safety Report 7307528-5 (Version None)
Quarter: 2011Q1

REPORT INFORMATION
  Report Type: 
  Country: None (occurrence: None)
  Receive Date: 20110209
  Receipt Date: 20110128
  Transmission Date: 20110831
  Serious: Yes (Hospitalization)
  Sender: FDA-Public Use
  Company Number: 2011022973

PATIENT
  Age: 67 Year
  Sex: Female
  Weight: 91.7 kg

DRUGS (7)
  1. BETAMETHASONE [Concomitant]
  2. MORPHINE [Concomitant]
  3. BACLOFEN [Concomitant]
  4. DALTEPARIN SODIUM [Suspect]
     Indication: DEEP VEIN THROMBOSIS
     Dosage: 12500 IU, 1X/DAY, SUBCUTANEOUS
     Route: 058
     Dates: start: 20100415
  5. STEMETIL ^AVENTIS PHARMA^ (PROCHLORPERAZINE) [Concomitant]
  6. LASIX [Concomitant]
  7. GABAPENTIN [Concomitant]

REACTIONS (1)
  - CELLULITIS [None]
